FAERS Safety Report 9162320 (Version 2)
Quarter: 2013Q2

REPORT INFORMATION
  Report Type: Spontaneous
  Country: US (occurrence: None)
  Receive Date: 20130222
  Receipt Date: 20130513
  Transmission Date: 20140414
  Serious: Yes (Other)
  Sender: FDA-Public Use
  Company Number: CRC-13-110

PATIENT
  Age: 6 Year
  Sex: Female

DRUGS (2)
  1. VECURONIUM BROMIDE [Suspect]
     Indication: MOVEMENT DISORDER
     Dosage: TOTAL
     Route: 042
     Dates: start: 20130207
  2. ASPIRIN CHEWABLE [Concomitant]

REACTIONS (1)
  - Drug ineffective [None]
